FAERS Safety Report 13024519 (Version 1)
Quarter: 2016Q4

REPORT INFORMATION
  Report Type: Spontaneous
  Country: GB (occurrence: GB)
  Receive Date: 20161213
  Receipt Date: 20161213
  Transmission Date: 20170207
  Serious: Yes (Other)
  Sender: FDA-Public Use
  Company Number: GB-MYLANLABS-2016M1055246

PATIENT

DRUGS (3)
  1. PROPOFOL. [Concomitant]
     Active Substance: PROPOFOL
     Indication: INDUCTION OF ANAESTHESIA
  2. NITROUS OXIDE W/OXYGEN [Interacting]
     Active Substance: NITROUS OXIDE\OXYGEN
     Indication: ANAESTHESIA
     Route: 055
  3. METHOTREXATE. [Suspect]
     Active Substance: METHOTREXATE
     Indication: ACUTE UNDIFFERENTIATED LEUKAEMIA
     Route: 037

REACTIONS (2)
  - Drug interaction [Recovering/Resolving]
  - Leukoencephalopathy [Recovering/Resolving]
